FAERS Safety Report 4421450-3 (Version None)
Quarter: 2004Q3

REPORT INFORMATION
  Report Type: 
  Country: None (occurrence: None)
  Receive Date: 20040712
  Receipt Date: 20040303
  Transmission Date: 20050211
  Serious: No
  Sender: FDA-Public Use
  Company Number: PC-04-002

PATIENT
  Sex: Male

DRUGS (1)
  1. IMAGENT [Suspect]
     Indication: SCAN WITH CONTRAST
     Dosage: 03 ML, IV
     Route: 042
     Dates: start: 20040301, end: 20040301

REACTIONS (2)
  - BLOOD PRESSURE DECREASED [None]
  - HYPERHIDROSIS [None]
